FAERS Safety Report 7807765-7 (Version None)
Quarter: 2011Q4

REPORT INFORMATION
  Report Type: 
  Country: None (occurrence: None)
  Receive Date: 20111011
  Receipt Date: 20111003
  Transmission Date: 20120403
  Serious: Yes (Hospitalization)
  Sender: FDA-Public Use
  Company Number: US-NOVOPROD-336374

PATIENT

DRUGS (10)
  1. DILANTIN [Concomitant]
     Indication: EPILEPSY
  2. DEPAKOTE [Concomitant]
     Indication: EPILEPSY
  3. PHENOBARBITAL TAB [Concomitant]
     Indication: EPILEPSY
  4. DIAZEPAM [Concomitant]
     Indication: ANXIETY
  5. NOVOLOG [Suspect]
     Dosage: 22 U, QPM
     Route: 058
     Dates: start: 20090101, end: 20110926
  6. ULTRAM [Concomitant]
     Indication: NECK PAIN
  7. NOVOLOG [Suspect]
     Indication: TYPE 1 DIABETES MELLITUS
     Dosage: 22 U, QAM
     Route: 058
     Dates: start: 20090101, end: 20110926
  8. FLOVENT [Concomitant]
     Indication: ASTHMA
  9. ALBUTEROL [Concomitant]
     Indication: ASTHMA
  10. PROVENTIL                          /00139501/ [Concomitant]
     Indication: ASTHMA

REACTIONS (2)
  - CONDITION AGGRAVATED [None]
  - GRAND MAL CONVULSION [None]
